FAERS Safety Report 7640681-2 (Version None)
Quarter: 2011Q3

REPORT INFORMATION
  Report Type: 
  Country: None (occurrence: None)
  Receive Date: 20110721
  Receipt Date: 20110706
  Transmission Date: 20111222
  Serious: Yes (Other)
  Sender: FDA-Public Use
  Company Number: AUR-APL-2011-00255

PATIENT
  Age: 73 Year
  Sex: Female

DRUGS (5)
  1. ZETIA [Concomitant]
  2. TOPROL-XL [Concomitant]
  3. GLIPIZIDE [Suspect]
     Indication: DIABETES MELLITUS
     Dosage: (2.5 MG)
     Dates: start: 20100901, end: 20100901
  4. METFORMIN (METFORMIN) [Suspect]
     Indication: PRODUCT USED FOR UNKNOWN INDICATION
  5. ZESTRIL [Concomitant]

REACTIONS (9)
  - SWOLLEN TONGUE [None]
  - GLOSSODYNIA [None]
  - PARAESTHESIA ORAL [None]
  - BURNING SENSATION [None]
  - ORAL PAIN [None]
  - LIP SWELLING [None]
  - TONGUE DRY [None]
  - CHEILITIS [None]
  - PRODUCT SUBSTITUTION ISSUE [None]
